FAERS Safety Report 4783841-0 (Version None)
Quarter: 2005Q3

REPORT INFORMATION
  Report Type: 
  Country: None (occurrence: None)
  Receive Date: 20050928
  Receipt Date: 20050901
  Transmission Date: 20060218
  Serious: Yes (Death)
  Sender: FDA-Public Use
  Company Number: 2005FR-00321

PATIENT
  Age: 92 Year
  Sex: Female

DRUGS (4)
  1. IBUPROFEN [Suspect]
     Indication: CHEST PAIN
     Dosage: 400 MG, ORAL
     Route: 048
     Dates: start: 20041202, end: 20041209
  2. PARACETAMOL [Concomitant]
     Indication: CHEST PAIN
     Dosage: 1 G
     Route: 048
     Dates: start: 20041202, end: 20041210
  3. LACTULOSE [Concomitant]
  4. SENNA [Concomitant]

REACTIONS (1)
  - PANCREATITIS [None]
